FAERS Safety Report 7467378-6 (Version None)
Quarter: 2011Q2

REPORT INFORMATION
  Report Type: 
  Country: None (occurrence: None)
  Receive Date: 20110509
  Receipt Date: 20110225
  Transmission Date: 20111010
  Serious: Yes (Death, Hospitalization, Other)
  Sender: FDA-Public Use
  Company Number: US-BAYER-200910071NA

PATIENT
  Age: 65 Year
  Sex: Female
  Weight: 83.9 kg

DRUGS (32)
  1. ACETAMINOPHEN AND OXYCODONE HCL [Concomitant]
     Dosage: 1-2 TABLETS Q4H PRN
     Route: 048
  2. ACETYLSALICYLIC ACID SRT [Concomitant]
     Dosage: 325 MG, QD
     Route: 048
  3. ENOXAPARIN [Concomitant]
     Dosage: 60 MG, Q12H
     Route: 058
     Dates: start: 20021121, end: 20021124
  4. FUROSEMIDE [Concomitant]
     Dosage: UNK
     Route: 042
     Dates: start: 20021126
  5. PROPOFOL [Concomitant]
     Dosage: UNK
     Route: 042
     Dates: start: 20021126
  6. IBUPROFEN [Concomitant]
     Dosage: 600 MG, Q6H PRN
     Route: 048
  7. FUROSEMIDE [Concomitant]
     Dosage: 40 MG, QD
     Route: 048
  8. VERAPAMIL [Concomitant]
     Dosage: UNK
     Route: 042
     Dates: start: 20021126
  9. FENTANYL [Concomitant]
     Dosage: UNK
     Route: 042
     Dates: start: 20021126
  10. TRASYLOL [Suspect]
     Indication: CORONARY ARTERY BYPASS
     Dosage: 200 ML LOADING DOSE
     Route: 042
     Dates: start: 20021126, end: 20021126
  11. CARVEDILOL [Concomitant]
     Dosage: 12.5 MG, BID, HOLD FOR HEART RATE LESS THAN 60 AND SYSTOLIC BLOOD PRESSURE LESS THAN 100
     Route: 048
  12. GEMFIBROZIL [Concomitant]
     Dosage: 600 MG, BID
     Route: 048
  13. HEPARIN [Concomitant]
     Dosage: UNK
     Route: 042
     Dates: start: 20021126
  14. PROTAMINE [Concomitant]
     Dosage: UNK
     Route: 042
     Dates: start: 20021126
  15. AMIODARONE [Concomitant]
     Dosage: UNK
     Route: 042
     Dates: start: 20021126
  16. MIDAZOLAM [Concomitant]
     Dosage: UNK
     Route: 042
     Dates: start: 20021126
  17. DIGOXIN [Concomitant]
     Dosage: 0.125 MCG DAILY
     Route: 048
  18. LASIX [Concomitant]
     Dosage: UNK
     Route: 042
  19. NITROGLYCERIN [Concomitant]
     Dosage: 0.4 MG/HR, EVERY EVENING
     Route: 061
  20. SIMVASTATIN [Concomitant]
     Dosage: 40 MG, QD
     Route: 048
  21. CEFUROXIME [Concomitant]
     Dosage: UNK
     Route: 042
     Dates: start: 20021126
  22. EPINEPHRINE [Concomitant]
     Dosage: UNK
     Route: 042
     Dates: start: 20021126
  23. MILRINONE [Concomitant]
     Dosage: UNK
     Route: 042
     Dates: start: 20021126
  24. TRASYLOL [Suspect]
     Indication: MITRAL VALVE REPAIR
  25. NITROGLYCERIN [Concomitant]
     Dosage: UNK
     Route: 042
     Dates: start: 20021126
  26. LISINOPRIL [Concomitant]
     Dosage: 10 MG, QD
     Route: 048
  27. FERROUS SULFATE TAB [Concomitant]
     Dosage: 325 U, BID
     Route: 048
  28. LIDOCAINE [Concomitant]
     Dosage: UNK
     Route: 042
     Dates: start: 20021126
  29. INSULIN, REGULAR [INSULIN] [Concomitant]
     Dosage: SLIDING SCALE
     Route: 058
  30. NPH INSULIN [Concomitant]
     Dosage: 28 U, BID
     Route: 058
  31. VASOPRESSIN [VASOPRESSIN] [Concomitant]
     Dosage: UNK
     Route: 042
     Dates: start: 20021126
  32. ROCURONIUM [Concomitant]
     Dosage: UNK
     Route: 042
     Dates: start: 20021126

REACTIONS (6)
  - RENAL INJURY [None]
  - RENAL FAILURE ACUTE [None]
  - UNEVALUABLE EVENT [None]
  - PAIN [None]
  - RENAL FAILURE [None]
  - INJURY [None]
